FAERS Safety Report 9259172 (Version 1)
Quarter: 2013Q2

REPORT INFORMATION
  Report Type: Spontaneous
  Country: FR (occurrence: FR)
  Receive Date: 20130426
  Receipt Date: 20130426
  Transmission Date: 20140414
  Serious: Yes (Death, Hospitalization)
  Sender: FDA-Public Use
  Company Number: FR-GILEAD-2013-0074182

PATIENT
  Age: 54 Year
  Sex: Female

DRUGS (5)
  1. TRUVADA [Suspect]
     Indication: HIV INFECTION
     Dosage: 1 DF, UNK
     Route: 048
     Dates: start: 20100527
  2. REYATAZ [Suspect]
     Indication: HIV INFECTION
     Dosage: 300 MG, UNK
     Route: 048
     Dates: start: 20100527, end: 20100608
  3. NORVIR [Suspect]
     Indication: HIV INFECTION
     Dosage: 100 MG, UNK
     Route: 048
     Dates: start: 20100527, end: 20100608
  4. ISENTRESS [Suspect]
     Indication: HIV INFECTION
     Dosage: 400 MG, UNK
     Route: 048
     Dates: start: 20100608
  5. METFORMINE [Suspect]
     Indication: DIABETES MELLITUS
     Dosage: 1500 MG, UNK
     Route: 048

REACTIONS (1)
  - Renal failure acute [Fatal]
